FAERS Safety Report 4462708-1 (Version None)
Quarter: 2004Q3

REPORT INFORMATION
  Report Type: 
  Country: None (occurrence: None)
  Receive Date: 20040927
  Receipt Date: 20040913
  Transmission Date: 20050211
  Serious: Yes (Other)
  Sender: FDA-Public Use
  Company Number: 2004066710

PATIENT
  Age: 72 Year
  Sex: Female
  Weight: 77.1115 kg

DRUGS (5)
  1. TIKOSYN [Suspect]
     Indication: ATRIAL FLUTTER
     Dosage: (2 IN 1 D), ORAL
     Route: 048
     Dates: start: 20040907
  2. DESLORATADINE (DESLORATADINE) [Concomitant]
  3. ALENDRONATE SODIUM [Concomitant]
  4. CELECOXIB (CELECOXIB) [Concomitant]
  5. TRAZODONE HCL [Concomitant]

REACTIONS (3)
  - DYSPNOEA [None]
  - FATIGUE [None]
  - OXYGEN SATURATION DECREASED [None]
